FAERS Safety Report 10142929 (Version 1)
Quarter: 2014Q2

REPORT INFORMATION
  Report Type: Spontaneous
  Country: FR (occurrence: FR)
  Receive Date: 20140430
  Receipt Date: 20140430
  Transmission Date: 20141212
  Serious: Yes (Hospitalization)
  Sender: FDA-Public Use
  Company Number: FR-ASTRAZENECA-2014SE28244

PATIENT
  Age: 83 Year
  Sex: Female

DRUGS (9)
  1. MOPRAL [Suspect]
     Indication: ABDOMINAL PAIN UPPER
     Route: 048
     Dates: end: 201309
  2. MOPRAL [Suspect]
     Indication: ABDOMINAL PAIN UPPER
     Route: 048
     Dates: start: 20131206, end: 20140302
  3. LEVOTHYROX [Concomitant]
  4. ALTEIS [Concomitant]
  5. SOTALOL [Concomitant]
  6. LYRICA [Concomitant]
     Dosage: 25 MG AT MORNING, 50 MG AT NIGHT
  7. TARDYFERON [Concomitant]
  8. NAFTIDROFURYL [Concomitant]
  9. PREVISCAN [Concomitant]
     Dates: start: 20140226

REACTIONS (2)
  - General physical health deterioration [Unknown]
  - Thrombocytopenia [Recovered/Resolved]
